FAERS Safety Report 24635181 (Version 1)
Quarter: 2024Q4

REPORT INFORMATION
  Report Type: Spontaneous
  Country: CN (occurrence: CN)
  Receive Date: 20241119
  Receipt Date: 20241119
  Transmission Date: 20250114
  Serious: Yes (Hospitalization, Other)
  Sender: BAXTER
  Company Number: None

PATIENT
  Age: 34 Year
  Sex: Female
  Weight: 64 kg

DRUGS (8)
  1. CYCLOPHOSPHAMIDE [Suspect]
     Active Substance: CYCLOPHOSPHAMIDE
     Indication: Breast cancer
     Dosage: (DOSAGE FORM: POWDER FOR INJECTION) 1.0 G CYCLOPHOSPHAMIDE FOR INJECTION DILUTED IN 80.0 ML OF 0.9%
     Route: 042
     Dates: start: 20240604, end: 20240604
  2. CYCLOPHOSPHAMIDE [Suspect]
     Active Substance: CYCLOPHOSPHAMIDE
     Indication: Invasive breast carcinoma
  3. CYCLOPHOSPHAMIDE [Suspect]
     Active Substance: CYCLOPHOSPHAMIDE
     Indication: Chemotherapy
  4. DOCETAXEL [Suspect]
     Active Substance: DOCETAXEL
     Indication: Breast cancer
     Dosage: (DOSAGE FORM: INJECTION SOLUTION) 120.0 MG DOCETAXEL INJECTION DILUTED IN 250.0 ML OF 0.9% SODIUM CH
     Route: 041
     Dates: start: 20240604, end: 20240604
  5. DOCETAXEL [Suspect]
     Active Substance: DOCETAXEL
     Indication: Invasive breast carcinoma
  6. DOCETAXEL [Suspect]
     Active Substance: DOCETAXEL
     Indication: Chemotherapy
  7. SODIUM CHLORIDE [Suspect]
     Active Substance: SODIUM CHLORIDE
     Indication: Medication dilution
     Dosage: (DOSAGE FORM: INJECTION SOLUTION) 80.0 ML OF 0.9% SODIUM CHLORIDE INJECTION USED TO DILUTE 1.0 G OF
     Route: 042
     Dates: start: 20240604, end: 20240604
  8. SODIUM CHLORIDE [Suspect]
     Active Substance: SODIUM CHLORIDE
     Dosage: (DOSAGE FORM: INJECTION SOLUTION) 250.0 ML OF 0.9% SODIUM CHLORIDE INJECTION USED TO DILUTE 120.0 MG
     Route: 041
     Dates: start: 20240604, end: 20240604

REACTIONS (6)
  - Drug-induced liver injury [Recovering/Resolving]
  - Liver injury [Unknown]
  - Alanine aminotransferase increased [Recovering/Resolving]
  - Aspartate aminotransferase increased [Recovering/Resolving]
  - Gamma-glutamyltransferase increased [Recovering/Resolving]
  - Hepatic enzyme increased [Recovering/Resolving]

NARRATIVE: CASE EVENT DATE: 20240612
